FAERS Safety Report 4349043-7 (Version None)
Quarter: 2004Q2

REPORT INFORMATION
  Report Type: 
  Country: None (occurrence: None)
  Receive Date: 20040420
  Receipt Date: 20040408
  Transmission Date: 20050107
  Serious: Yes (Hospitalization)
  Sender: FDA-Public Use
  Company Number: 2004-01450

PATIENT

DRUGS (1)
  1. IMMUNOCYST (BCG - IT (CONAUGHT)), AVENTIS PASTUER, LTD., LOT NOT REP, [Suspect]
     Indication: BLADDER CANCER

REACTIONS (10)
  - BLOOD FIBRINOGEN INCREASED [None]
  - C-REACTIVE PROTEIN INCREASED [None]
  - CYTOLYTIC HEPATITIS [None]
  - DYSPEPSIA [None]
  - EPIDIDYMITIS [None]
  - HICCUPS [None]
  - HYPERHIDROSIS [None]
  - PYREXIA [None]
  - TUBERCULOSIS [None]
  - WHITE BLOOD CELL COUNT INCREASED [None]
